FAERS Safety Report 12261607 (Version 1)
Quarter: 2016Q2

REPORT INFORMATION
  Report Type: Spontaneous
  Country: JP (occurrence: JP)
  Receive Date: 20160413
  Receipt Date: 20160413
  Transmission Date: 20160815
  Serious: Yes (Disabling)
  Sender: FDA-Public Use
  Company Number: JP-ELI_LILLY_AND_COMPANY-JP201603006923

PATIENT
  Age: 77 Year
  Sex: Female

DRUGS (6)
  1. EDIROL [Concomitant]
     Active Substance: ELDECALCITOL
  2. EVISTA [Suspect]
     Active Substance: RALOXIFENE HYDROCHLORIDE
     Indication: OSTEOPOROSIS POSTMENOPAUSAL
     Dosage: 60 MG, QD
     Route: 048
     Dates: start: 20160219, end: 20160311
  3. MECOBALAMIN [Concomitant]
     Active Substance: METHYLCOBALAMIN
  4. AMOBAN [Concomitant]
     Active Substance: ZOPICLONE
  5. OPALMON [Concomitant]
     Active Substance: LIMAPROST
  6. GOSHAJINKIGAN [Concomitant]
     Active Substance: HERBALS

REACTIONS (2)
  - Visual acuity reduced [Unknown]
  - Retinal vein thrombosis [Unknown]

NARRATIVE: CASE EVENT DATE: 20160311
